FAERS Safety Report 9264402 (Version 2)
Quarter: 2013Q3

REPORT INFORMATION
  Report Type: Spontaneous
  Country: DE (occurrence: DE)
  Receive Date: 20130430
  Receipt Date: 20130902
  Transmission Date: 20140515
  Serious: Yes (Hospitalization)
  Sender: FDA-Public Use
  Company Number: DE-B.I. PHARMACEUTICALS,INC./RIDGEFIELD-2013-DE-01218DE

PATIENT
  Age: 73 Year
  Sex: Male
  Weight: 67 kg

DRUGS (10)
  1. PRADAXA [Suspect]
     Indication: ATRIAL FIBRILLATION
     Dosage: 220 MG
     Route: 048
     Dates: start: 20121116, end: 20121201
  2. RASILEZ [Concomitant]
     Indication: HYPERTENSION
     Dosage: 300 MG
     Route: 048
  3. BISOPROLOL [Concomitant]
     Indication: HYPERTENSION
     Dosage: 5 MG
     Route: 048
  4. TORASEMID [Concomitant]
     Indication: HYPERTENSION
     Dosage: 10 MG
     Route: 048
  5. CARMEN [Concomitant]
     Indication: HYPERTENSION
     Dosage: 5 MG
     Route: 048
  6. ALLOPURINOL [Concomitant]
     Dosage: 21.4286 MG
     Route: 048
  7. MOXODURA [Concomitant]
     Dosage: 0.3 MG
     Route: 048
  8. DOXAZOSIN [Concomitant]
     Route: 048
  9. CEFUROXIM [Concomitant]
     Indication: INFLUENZA LIKE ILLNESS
     Dosage: 500 MG
     Route: 048
     Dates: start: 20121128
  10. ROXITHROMYCIN [Concomitant]
     Indication: INFECTION
     Dosage: 300 MG
     Dates: start: 20121127

REACTIONS (1)
  - Pancytopenia [Recovered/Resolved]
